FAERS Safety Report 5170783-4 (Version None)
Quarter: 2006Q4

REPORT INFORMATION
  Report Type: 
  Country: None (occurrence: None)
  Receive Date: 20060919
  Receipt Date: 20060602
  Transmission Date: 20070319
  Serious: No
  Sender: FDA-Public Use
  Company Number: BDI-008306

PATIENT
  Age: 57 Year
  Sex: Male

DRUGS (3)
  1. MULTIHANCE [Suspect]
     Indication: FACIAL PAIN
     Dosage: IV
     Route: 042
     Dates: start: 20060518, end: 20060518
  2. MULTIHANCE [Suspect]
     Indication: HEADACHE
     Dosage: IV
     Route: 042
     Dates: start: 20060518, end: 20060518
  3. MULTIHANCE [Suspect]
     Indication: NUCLEAR MAGNETIC RESONANCE IMAGING BRAIN
     Dosage: IV
     Route: 042
     Dates: start: 20060518, end: 20060518

REACTIONS (6)
  - CHEST PAIN [None]
  - CONFUSIONAL STATE [None]
  - DISORIENTATION [None]
  - DYSPNOEA [None]
  - ERYTHEMA [None]
  - NAUSEA [None]
